FAERS Safety Report 15638668 (Version 1)
Quarter: 2018Q4

REPORT INFORMATION
  Report Type: Spontaneous
  Country: US (occurrence: US)
  Receive Date: 20181120
  Receipt Date: 20181120
  Transmission Date: 20190205
  Serious: No
  Sender: FDA-Public Use
  Company Number: US-JNJFOC-20180214379

PATIENT
  Age: 85 Year
  Sex: Male

DRUGS (4)
  1. CARBIDOPA AND LEVODOPA [Concomitant]
     Active Substance: CARBIDOPA\LEVODOPA
  2. ACYCLOVIR. [Concomitant]
     Active Substance: ACYCLOVIR
  3. IMBRUVICA [Suspect]
     Active Substance: IBRUTINIB
     Indication: CHRONIC LYMPHOCYTIC LEUKAEMIA
     Route: 048
  4. IMBRUVICA [Suspect]
     Active Substance: IBRUTINIB
     Indication: CHRONIC LYMPHOCYTIC LEUKAEMIA
     Route: 048
     Dates: start: 20180102

REACTIONS (4)
  - Blood pressure increased [Unknown]
  - Haemorrhage [Unknown]
  - Ear injury [Unknown]
  - Fall [Unknown]

NARRATIVE: CASE EVENT DATE: 201801
